FAERS Safety Report 18848438 (Version 1)
Quarter: 2021Q1

REPORT INFORMATION
  Report Type: Spontaneous
  Country: GB (occurrence: GB)
  Receive Date: 20210204
  Receipt Date: 20210204
  Transmission Date: 20210419
  Serious: Yes (Life-Threatening, Hospitalization, Other)
  Sender: FDA-Public Use
  Company Number: GB-TEVA-2021-GB-1873208

PATIENT
  Age: 58 Year
  Sex: Female
  Weight: 60 kg

DRUGS (6)
  1. BISOPROLOL FUMARATE. [Concomitant]
     Active Substance: BISOPROLOL FUMARATE
  2. TEVA UK LEVOTHYROXINE [Suspect]
     Active Substance: LEVOTHYROXINE
     Indication: HYPOTHYROIDISM
     Route: 048
     Dates: start: 20210111, end: 20210117
  3. LEVEMIR [Concomitant]
     Active Substance: INSULIN DETEMIR
  4. VITAMIN B12 [Concomitant]
     Active Substance: CYANOCOBALAMIN
  5. VITAMIN D [Concomitant]
     Active Substance: VITAMIN D NOS
  6. NOVORAPID [Concomitant]
     Active Substance: INSULIN ASPART

REACTIONS (10)
  - Allergic sinusitis [Recovering/Resolving]
  - Fatigue [Unknown]
  - Micturition disorder [Unknown]
  - Nausea [Unknown]
  - Defaecation disorder [Unknown]
  - Anaphylactic reaction [Recovered/Resolved with Sequelae]
  - Dry eye [Unknown]
  - Throat irritation [Unknown]
  - Visual impairment [Unknown]
  - Allergic reaction to excipient [Unknown]

NARRATIVE: CASE EVENT DATE: 20210111
